FAERS Safety Report 17525743 (Version 2)
Quarter: 2020Q1

REPORT INFORMATION
  Report Type: Spontaneous
  Country: US (occurrence: US)
  Receive Date: 20200310
  Receipt Date: 20200325
  Transmission Date: 20200409
  Serious: Yes (Hospitalization)
  Sender: FDA-Public Use
  Company Number: US-ALLERGAN-2010415US

PATIENT
  Sex: Female

DRUGS (1)
  1. TRIPTORELIN PAMOATE - BP [Suspect]
     Active Substance: TRIPTORELIN PAMOATE
     Indication: PRECOCIOUS PUBERTY
     Dosage: 22.5 MG, SINGLE
     Route: 030
     Dates: start: 20200123, end: 20200123

REACTIONS (3)
  - Appendicitis [Unknown]
  - Off label use [Unknown]
  - Peritonitis [Unknown]

NARRATIVE: CASE EVENT DATE: 20200219
